FAERS Safety Report 21614081 (Version 1)
Quarter: 2022Q4

REPORT INFORMATION
  Report Type: Spontaneous
  Country: US (occurrence: None)
  Receive Date: 20221116
  Receipt Date: 20221116
  Transmission Date: 20230113
  Serious: No
  Sender: FDA-Public Use
  Company Number: None

PATIENT

DRUGS (1)
  1. ERGOCALCIFEROL [Suspect]
     Active Substance: ERGOCALCIFEROL
     Route: 048

REACTIONS (6)
  - Product outer packaging issue [None]
  - Product label confusion [None]
  - Physical product label issue [None]
  - Product advertising issue [None]
  - Device information output issue [None]
  - Product preparation error [None]
